FAERS Safety Report 6043563-5 (Version None)
Quarter: 2009Q1

REPORT INFORMATION
  Report Type: 
  Country: None (occurrence: None)
  Receive Date: 20090120
  Receipt Date: 20090114
  Transmission Date: 20090719
  Serious: Yes (Hospitalization)
  Sender: FDA-Public Use
  Company Number: US-ABBOTT-09P-163-0497755-00

PATIENT
  Sex: Male
  Weight: 154.36 kg

DRUGS (8)
  1. ZEMPLAR [Suspect]
     Indication: HYPERPARATHYROIDISM
     Route: 048
     Dates: start: 20080901, end: 20081217
  2. PERCOCET [Suspect]
     Indication: PAIN
     Route: 048
     Dates: start: 20081215, end: 20090107
  3. PREDNISONE [Concomitant]
     Indication: PAIN
     Dosage: COURSE TAKEN PRN
     Route: 048
  4. METOPROLOL TARTRATE [Concomitant]
     Indication: HYPERTENSION
     Route: 048
  5. ALLOPURINOL [Concomitant]
     Indication: GOUT
     Route: 048
  6. SIMVASTATIN [Concomitant]
     Indication: BLOOD CHOLESTEROL INCREASED
     Route: 048
  7. COUMADIN [Concomitant]
     Indication: DRUG USE FOR UNKNOWN INDICATION
     Route: 048
  8. HYDRALAZINE HCL [Concomitant]
     Indication: HYPERTENSION
     Route: 048

REACTIONS (2)
  - ATRIAL FIBRILLATION [None]
  - DIABETES MELLITUS [None]
